FAERS Safety Report 6707265-1 (Version None)
Quarter: 2010Q2

REPORT INFORMATION
  Report Type: 
  Country: None (occurrence: None)
  Receive Date: 20100503
  Receipt Date: 20091023
  Transmission Date: 20101027
  Serious: No
  Sender: FDA-Public Use
  Company Number: US-ASTRAZENECA-2009SE22232

PATIENT
  Age: 53 Year
  Sex: Female

DRUGS (5)
  1. NEXIUM [Suspect]
     Indication: BARRETT'S OESOPHAGUS
     Route: 048
  2. LISINOPRIL [Concomitant]
  3. ESTRADIOL [Concomitant]
  4. LUNESTA [Concomitant]
  5. XANAX [Concomitant]

REACTIONS (4)
  - ABDOMINAL PAIN [None]
  - DRUG DOSE OMISSION [None]
  - OESOPHAGEAL PAIN [None]
  - OFF LABEL USE [None]
